FAERS Safety Report 6028590-6 (Version None)
Quarter: 2008Q4

REPORT INFORMATION
  Report Type: 
  Country: None (occurrence: None)
  Receive Date: 20081231
  Receipt Date: 20081231
  Transmission Date: 20090506
  Serious: Yes (Hospitalization, Other)
  Sender: FDA-Public Use
  Company Number: None

PATIENT
  Age: 77 Year
  Sex: Male

DRUGS (1)
  1. LORAZEPAM [Suspect]
     Dosage: 1 MG ONCE IV
     Route: 042
     Dates: start: 20081130, end: 20081130

REACTIONS (2)
  - AGITATION [None]
  - CONFUSIONAL STATE [None]
